FAERS Safety Report 10407031 (Version 2)
Quarter: 2014Q2

REPORT INFORMATION
  Report Type: Spontaneous
  Country: US (occurrence: None)
  Receive Date: 20140228
  Receipt Date: 20140530
  Transmission Date: 20141212
  Serious: No
  Sender: FDA-Public Use
  Company Number: 225882LEO

PATIENT
  Age: 59 Year
  Sex: Male

DRUGS (4)
  1. PICATO (INGENOL MEBUTATE) (0.05 %, GEL) [Suspect]
     Indication: ACTINIC KERATOSIS
     Dosage: 1 IN 1 D
     Dates: start: 20140127
  2. CELEXA (CITALOPRAM HYDROBROMIDE) [Concomitant]
  3. SALINE EYE DROPS(SODIUM CHLORIDE))EYE DROPS) [Concomitant]
  4. BIAXIN(CLARITHROMYCIN) [Concomitant]

REACTIONS (5)
  - Eye swelling [None]
  - Eye irritation [None]
  - Eye irritation [None]
  - Drug ineffective [None]
  - Drug administered at inappropriate site [None]
